FAERS Safety Report 12283599 (Version 3)
Quarter: 2016Q4

REPORT INFORMATION
  Report Type: Spontaneous
  Country: GB (occurrence: GB)
  Receive Date: 20160419
  Receipt Date: 20161116
  Transmission Date: 20170207
  Serious: Yes (Disabling, Other)
  Sender: FDA-Public Use
  Company Number: GB-TEVA-651682ACC

PATIENT
  Age: 71 Year
  Sex: Male
  Weight: 80.28 kg

DRUGS (12)
  1. TRAMADOL HYDROCHLORIDE. [Concomitant]
     Active Substance: TRAMADOL HYDROCHLORIDE
     Indication: PAIN IN EXTREMITY
  2. INDAPAMIDE? [Concomitant]
     Indication: MYOCARDIAL ISCHAEMIA
  3. CAPSAICIN. [Concomitant]
     Active Substance: CAPSAICIN
     Indication: PAIN IN EXTREMITY
  4. FULTIUM-D3? [Concomitant]
     Indication: VITAMIN D DEFICIENCY
  5. TRAMADOL HYDROCHLORIDE. [Concomitant]
     Active Substance: TRAMADOL HYDROCHLORIDE
     Indication: NECK PAIN
     Dosage: 50-100MG UP TO FOUR TIMES A DAY?
  6. LIDOCAINE. [Concomitant]
     Active Substance: LIDOCAINE
     Indication: PAIN IN EXTREMITY
  7. CLOPIDOGREL [Concomitant]
     Active Substance: CLOPIDOGREL BISULFATE
     Indication: MYOCARDIAL ISCHAEMIA
     Dosage: 75 MILLIGRAM DAILY;
  8. PARACETAMOL [Concomitant]
     Active Substance: ACETAMINOPHEN
     Indication: NECK PAIN
     Dosage: CAPLETS 4-6 HOURLY?
  9. DOXYCYCLINE. [Suspect]
     Active Substance: DOXYCYCLINE
     Indication: LOWER RESPIRATORY TRACT INFECTION
     Dosage: 200MG DAY 1 THEN 100MG PER DAY
     Route: 048
     Dates: start: 20160329, end: 20160329
  10. LIDOCAINE. [Concomitant]
     Active Substance: LIDOCAINE
     Indication: NECK PAIN
     Dosage: MEDICATED PLASTER
     Route: 061
  11. GABAPENTIN. [Concomitant]
     Active Substance: GABAPENTIN
     Dosage: 2400 MILLIGRAM DAILY;
  12. DOXYCYCLINE. [Suspect]
     Active Substance: DOXYCYCLINE
     Route: 048
     Dates: start: 20160330, end: 20160331

REACTIONS (3)
  - Abdominal pain upper [Recovered/Resolved]
  - Faeces soft [Recovered/Resolved]
  - Rectal haemorrhage [Recovered/Resolved]

NARRATIVE: CASE EVENT DATE: 20160331
